FAERS Safety Report 7698821-5 (Version None)
Quarter: 2011Q3

REPORT INFORMATION
  Report Type: 
  Country: None (occurrence: None)
  Receive Date: 20110819
  Receipt Date: 20060428
  Transmission Date: 20111222
  Serious: Yes (Other)
  Sender: FDA-Public Use
  Company Number: DE-BAXTER-2011BH026466

PATIENT
  Sex: Male

DRUGS (3)
  1. CYCLOPHOSPHAMIDE [Suspect]
     Indication: IGA NEPHROPATHY
     Route: 042
     Dates: start: 19971201, end: 20020301
  2. PREDNISOLONE [Suspect]
     Indication: IGA NEPHROPATHY
     Route: 048
     Dates: start: 19971201, end: 20020301
  3. PREDNISOLONE [Suspect]
     Route: 048

REACTIONS (1)
  - PNEUMONIA MYCOPLASMAL [None]
